FAERS Safety Report 21628988 (Version 1)
Quarter: 2022Q4

REPORT INFORMATION
  Report Type: Spontaneous
  Country: US (occurrence: US)
  Receive Date: 20221122
  Receipt Date: 20221122
  Transmission Date: 20230113
  Serious: No
  Sender: FDA-Public Use
  Company Number: US-SA-SAC20221117001065

PATIENT
  Sex: Female

DRUGS (13)
  1. KEVZARA [Suspect]
     Active Substance: SARILUMAB
     Indication: Rheumatoid arthritis
     Dosage: 200 MG, QOW
     Route: 058
     Dates: start: 20220928
  2. ACETAZOLAMIDE [Concomitant]
     Active Substance: ACETAZOLAMIDE
  3. AMITRIPTYLINE HYDROCHLORIDE [Concomitant]
     Active Substance: AMITRIPTYLINE HYDROCHLORIDE
     Dosage: 50MG
  4. AMLODIPINE BESYLATE [Concomitant]
     Active Substance: AMLODIPINE BESYLATE
  5. BACLOFEN [Concomitant]
     Active Substance: BACLOFEN
  6. CARVEDILOL [Concomitant]
     Active Substance: CARVEDILOL
  7. EMGALITY [Concomitant]
     Active Substance: GALCANEZUMAB-GNLM
  8. FOLIC ACID [Concomitant]
     Active Substance: FOLIC ACID
  9. MELOXICAM [Concomitant]
     Active Substance: MELOXICAM
  10. PREDNISONE [Concomitant]
     Active Substance: PREDNISONE
  11. TRIAMCINOLONE [Concomitant]
     Active Substance: TRIAMCINOLONE
     Dosage: 10 MG
  12. UBRELVY [Concomitant]
     Active Substance: UBROGEPANT
  13. VITAMIN B12 [Concomitant]
     Active Substance: CYANOCOBALAMIN
     Dosage: 100 MG

REACTIONS (1)
  - Drug hypersensitivity [Unknown]
